FAERS Safety Report 4421457-6 (Version None)
Quarter: 2004Q3

REPORT INFORMATION
  Report Type: 
  Country: None (occurrence: None)
  Receive Date: 20040712
  Receipt Date: 20040520
  Transmission Date: 20050211
  Serious: No
  Sender: FDA-Public Use
  Company Number: 2004-03-1165

PATIENT
  Age: 85 Year
  Sex: Female
  Weight: 68.0396 kg

DRUGS (4)
  1. CLARINEX [Suspect]
     Indication: NASOPHARYNGITIS
     Dosage: 1 TABLET ORAL
     Route: 048
     Dates: start: 20040315, end: 20040316
  2. CLARINEX [Suspect]
     Indication: SNEEZING
     Dosage: 1 TABLET ORAL
     Route: 048
     Dates: start: 20040315, end: 20040316
  3. ATENOLOL [Concomitant]
  4. FUROSEMIDE [Concomitant]

REACTIONS (2)
  - HYPERSENSITIVITY [None]
  - NASAL CONGESTION [None]
